FAERS Safety Report 14348930 (Version 6)
Quarter: 2018Q2

REPORT INFORMATION
  Report Type: Spontaneous
  Country: DE (occurrence: DE)
  Receive Date: 20180104
  Receipt Date: 20180409
  Transmission Date: 20180711
  Serious: Yes (Hospitalization, Other)
  Sender: FDA-Public Use
  Company Number: DE-009507513-1801DEU000792

PATIENT
  Age: 78 Year
  Sex: Female

DRUGS (35)
  1. DIPYRONE [Suspect]
     Active Substance: DIPYRONE
     Dosage: 500 MG, QD
     Route: 048
     Dates: start: 20140526, end: 20140528
  2. DIPYRONE [Suspect]
     Active Substance: DIPYRONE
     Dosage: 500 MG, QD
     Route: 048
     Dates: start: 20140530, end: 20140530
  3. DIPYRONE [Suspect]
     Active Substance: DIPYRONE
     Dosage: 1500 MG
     Route: 048
     Dates: start: 20170517, end: 20170517
  4. POLYETHYLENE GLYCOL [Concomitant]
     Active Substance: POLYETHYLENE GLYCOLS
     Indication: PRODUCT USED FOR UNKNOWN INDICATION
     Dosage: 1 DF, QD
     Route: 048
     Dates: start: 20110101
  5. INSULIN [Concomitant]
     Active Substance: INSULIN NOS
     Indication: PRODUCT USED FOR UNKNOWN INDICATION
     Dosage: DAILY DOSE: 60 IU INTERNATIONAL UNIT(S) EVERY DAY
     Route: 058
  6. DIAZEPAM. [Suspect]
     Active Substance: DIAZEPAM
     Dosage: 30 MG, QD
     Route: 030
     Dates: start: 20140526, end: 20140528
  7. DIPYRONE [Suspect]
     Active Substance: DIPYRONE
     Dosage: 500 MG, QD
     Route: 048
     Dates: start: 20140522, end: 20140522
  8. DIPYRONE [Suspect]
     Active Substance: DIPYRONE
     Dosage: 1000 MG, QD
     Route: 048
     Dates: start: 20140523, end: 20140525
  9. SIMVASTATIN. [Concomitant]
     Active Substance: SIMVASTATIN
     Dosage: 10 MG, QD
     Route: 048
     Dates: start: 20140201
  10. RESONIUM [Concomitant]
     Active Substance: SODIUM POLYSTYRENE SULFONATE
     Indication: PRODUCT USED FOR UNKNOWN INDICATION
     Dosage: 2 TABLE SPOON
     Route: 048
     Dates: start: 20140528
  11. DIAZEPAM. [Suspect]
     Active Substance: DIAZEPAM
     Indication: RESTLESSNESS
     Dosage: 10 MG, UNK
     Route: 048
     Dates: start: 20140526, end: 20140528
  12. PIPAMPERONE [Interacting]
     Active Substance: PIPAMPERONE
     Dosage: 60 MG, QD
     Route: 048
     Dates: start: 20140515, end: 20140524
  13. PIPAMPERONE [Interacting]
     Active Substance: PIPAMPERONE
     Dosage: 80 MG, QD
     Route: 048
     Dates: start: 20140525, end: 20140526
  14. PIPAMPERONE [Interacting]
     Active Substance: PIPAMPERONE
     Dosage: 120 MG, QD
     Route: 048
     Dates: start: 20140527, end: 20140527
  15. DIPYRONE [Suspect]
     Active Substance: DIPYRONE
     Indication: PRODUCT USED FOR UNKNOWN INDICATION
     Dosage: 500-1000 MG, QD
     Route: 048
     Dates: start: 20140502, end: 20140517
  16. ABILIFY [Suspect]
     Active Substance: ARIPIPRAZOLE
     Indication: PRODUCT USED FOR UNKNOWN INDICATION
     Dosage: UNK MG, UNK
     Route: 048
     Dates: start: 20140508, end: 20140514
  17. STILNOX [Suspect]
     Active Substance: ZOLPIDEM TARTRATE
     Indication: PRODUCT USED FOR UNKNOWN INDICATION
     Dosage: 10 MG, QD
     Route: 048
     Dates: start: 20140527
  18. PIPAMPERONE [Interacting]
     Active Substance: PIPAMPERONE
     Indication: PRODUCT USED FOR UNKNOWN INDICATION
     Dosage: 20 MG, QD
     Route: 048
     Dates: start: 20140508, end: 20140509
  19. PANTOPRAZOLE [Concomitant]
     Active Substance: PANTOPRAZOLE
     Indication: PRODUCT USED FOR UNKNOWN INDICATION
     Dosage: 40 MG, EVERY DAY
     Route: 048
  20. DIPYRONE [Suspect]
     Active Substance: DIPYRONE
     Dosage: 1000 MG, QD
     Route: 048
     Dates: start: 20140520, end: 20140521
  21. CLOPIDOGREL [Concomitant]
     Active Substance: CLOPIDOGREL BISULFATE
     Indication: PRODUCT USED FOR UNKNOWN INDICATION
     Dosage: 75 MG, QD
     Route: 048
     Dates: start: 20110101
  22. MIRTAZAPINE. [Suspect]
     Active Substance: MIRTAZAPINE
     Indication: PRODUCT USED FOR UNKNOWN INDICATION
     Dosage: 30 MG, UNKNOWN
     Route: 048
  23. PIPAMPERONE [Interacting]
     Active Substance: PIPAMPERONE
     Dosage: 40 MG, QD
     Route: 048
     Dates: start: 20140510, end: 20140513
  24. PIPAMPERONE [Interacting]
     Active Substance: PIPAMPERONE
     Dosage: 20 MG, QD
     Route: 048
     Dates: start: 20140528, end: 20140528
  25. DIPYRONE [Suspect]
     Active Substance: DIPYRONE
     Dosage: 1500 MG, UNK
     Route: 048
  26. FOLIC ACID. [Concomitant]
     Active Substance: FOLIC ACID
     Indication: PRODUCT USED FOR UNKNOWN INDICATION
     Dosage: 5 MG, QD
     Route: 048
     Dates: start: 20140502
  27. VENLAFAXINE HYDROCHLORIDE. [Concomitant]
     Active Substance: VENLAFAXINE HYDROCHLORIDE
     Indication: PRODUCT USED FOR UNKNOWN INDICATION
     Dosage: 30 MG, UNKNOWN
     Route: 048
     Dates: start: 2012
  28. ABILIFY [Suspect]
     Active Substance: ARIPIPRAZOLE
     Dosage: 5 MG, UNK
     Route: 048
     Dates: start: 20140515, end: 20140520
  29. AMLODIPINE [Concomitant]
     Active Substance: AMLODIPINE BESYLATE
     Indication: PRODUCT USED FOR UNKNOWN INDICATION
     Dosage: 10 MG, QD
     Route: 048
     Dates: start: 20110101
  30. FORMOTEROL FUMARATE [Concomitant]
     Active Substance: FORMOTEROL FUMARATE
     Indication: PRODUCT USED FOR UNKNOWN INDICATION
     Dosage: DAILY DOSE: 1 DF DOSAGE FORM EVERY DAY
     Route: 065
     Dates: start: 20131201
  31. PREDNISOLONE. [Concomitant]
     Active Substance: PREDNISOLONE
     Indication: PRODUCT USED FOR UNKNOWN INDICATION
     Dosage: 60 MG, UNKNOWN
     Route: 048
     Dates: start: 20140528
  32. LISINOPRIL. [Interacting]
     Active Substance: LISINOPRIL
     Indication: PRODUCT USED FOR UNKNOWN INDICATION
     Dosage: 5 MG, (2.5 MIG PO SINCE 14-05-24 ONGOING )
     Route: 048
     Dates: start: 20140520, end: 20140520
  33. DIPYRONE [Suspect]
     Active Substance: DIPYRONE
     Dosage: 2000 MG, QD
     Route: 048
     Dates: start: 20140518, end: 20140519
  34. DUROGESIC [Suspect]
     Active Substance: FENTANYL
     Indication: PRODUCT USED FOR UNKNOWN INDICATION
     Dosage: 75 UG, Q72H
     Route: 062
     Dates: start: 20120101
  35. TETRAHYDROZOLINE HYDROCHLORIDE. [Concomitant]
     Active Substance: TETRAHYDROZOLINE HYDROCHLORIDE
     Indication: PRODUCT USED FOR UNKNOWN INDICATION
     Dosage: UNK 2X1 SINCE WEEKS
     Route: 065

REACTIONS (14)
  - Fall [Unknown]
  - Syncope [Recovered/Resolved]
  - Drug interaction [Unknown]
  - Prescribed underdose [Unknown]
  - Facial nerve disorder [Unknown]
  - Pancytopenia [Recovered/Resolved]
  - Rash [Unknown]
  - Left ventricular hypertrophy [Unknown]
  - Myoclonus [Unknown]
  - Loss of consciousness [Recovered/Resolved]
  - Hypokalaemia [Unknown]
  - Diarrhoea [Unknown]
  - Dysarthria [Unknown]
  - Restlessness [Unknown]

NARRATIVE: CASE EVENT DATE: 20140519
